FAERS Safety Report 23290512 (Version 1)
Quarter: 2023Q4

REPORT INFORMATION
  Report Type: Other
  Country: US (occurrence: None)
  Receive Date: 20231213
  Receipt Date: 20231213
  Transmission Date: 20240109
  Serious: No
  Sender: FDA-Public Use
  Company Number: US-ROCHE-3472870

PATIENT
  Age: 33 Year
  Sex: Female

DRUGS (1)
  1. OCREVUS [Suspect]
     Active Substance: OCRELIZUMAB
     Indication: Relapsing multiple sclerosis
     Dosage: ANTICIPATED DATE OF TREATMENT: 30/SEP/2021, DATE OF MOST RECENT INFUSION: 18/NOV/21
     Route: 042
     Dates: start: 2020

REACTIONS (3)
  - Infertility [Not Recovered/Not Resolved]
  - Varicella [Not Recovered/Not Resolved]
  - B-lymphocyte count decreased [Not Recovered/Not Resolved]

NARRATIVE: CASE EVENT DATE: 20221201
